FAERS Safety Report 9244663 (Version 1)
Quarter: 2013Q1

REPORT INFORMATION
  Report Type: Spontaneous
  Country: US (occurrence: None)
  Receive Date: 20121130
  Receipt Date: 20121130
  Transmission Date: 20140127
  Serious: Yes (Hospitalization, Other)
  Sender: FDA-Public Use
  Company Number: 2012-002852

PATIENT
  Age: 82 Year
  Sex: Female

DRUGS (51)
  1. DIDRONEL [Suspect]
     Indication: OSTEOPOROSIS
     Dosage: CYCLICAL THERAPY, ORAL
     Route: 048
     Dates: start: 1996, end: 19981116
  2. DIDRONEL [Suspect]
     Indication: OSTEOPENIA
     Dosage: CYCLICAL THERAPY, ORAL
     Route: 048
     Dates: start: 1996, end: 19981116
  3. ACTONEL (RISEDRONATE SODIUM) TABLET, 35MG [Suspect]
     Indication: OSTEOPOROSIS
     Route: 048
     Dates: start: 20050413, end: 201006
  4. ACTONEL (RISEDRONATE SODIUM) TABLET, 35MG [Suspect]
     Indication: OSTEOPENIA
     Route: 048
     Dates: start: 20050413, end: 201006
  5. FOSAMAX (ALENDRONATE SODIUM) [Suspect]
     Indication: OSTEOPOROSIS
     Route: 048
     Dates: start: 20020102, end: 200403
  6. COZAAR (LOSARTAN POTASSIUM) (50 MILLIGRAM, TABLETS) (LOSARTAN POTASSIUM) [Concomitant]
  7. ALPRAZOLAM (ALPRAZOLAM) [Concomitant]
  8. DESOXIMETASONE (DESOXIMETASONE) [Concomitant]
  9. AMMONIUM LACTATE (AMMONIUM LACTATE) [Concomitant]
  10. OMEPRAZOLE (OMEPRAZOLE) [Concomitant]
  11. LABETALOL HYDROCHLORIDE (LABETALOL HYDROCHLORIDE) [Concomitant]
  12. ALLEGRA D (FEXOFENADINE HYDROCHLORIDE, PSEUDOEPHEDRINE HYDROCHLORIDE) [Concomitant]
  13. TRAZODONE HCL (TRAZODONE HYDROCHLORIDE) [Concomitant]
  14. NORVASC (AMLODIPINE BESILATE) [Concomitant]
  15. FINACEA (AZELAIC ACID) [Concomitant]
  16. FLONASE (FLUTICASONE PROPIONATE) [Concomitant]
  17. SEREVENT (SALMETEROL XINAFOATE) [Concomitant]
  18. MECLIZINE?/00072801/ (MECLOZINE) [Concomitant]
  19. ARIMIDEX (ANASTROZOLE) [Concomitant]
  20. DENAVIR (PENCICLOVIR) [Concomitant]
  21. ERY-TAB (ERYTHROMYCIN) [Concomitant]
  22. AZITHROMYCIN (AZITHROMYCIN) [Concomitant]
  23. SIMVASTATIN (SIMVASTATIN) [Concomitant]
  24. SKELAXIN?/00611501/ (METAXALONE) [Concomitant]
  25. CILOSTAZOL (CILOSTAZOL) [Concomitant]
  26. CALTRATE + VITAMIN D (CALCIUM CARBONATE, COLECALCIFEROL) [Concomitant]
  27. CENTRUM SILVER?/01292501/ (ASCORBIC ACID,?CALCIUM, MINERALS NOS, RETINOL, TOCOPHERYL ACETATE, VITAMIN B NOS, VITAMINS NOS, ZINC) [Concomitant]
  28. TRAVATAN (TRAVOPROST) [Concomitant]
  29. RESTASIS (CICLOSPORIN) [Concomitant]
  30. ISOPTO TEARS?/00445101/ (HYPROMELLOSE) [Concomitant]
  31. ASPIRIN E.0 (ACETYLSALICYLIC ACID) [Concomitant]
  32. PLAVIX (CLOPIDOGREL BISULFATE) [Concomitant]
  33. QVAR (BECLOMETASONE DIPROPIONATE) [Concomitant]
  34. FLUVIRIN?/01389801/ (INFLUENZA VACCINE) [Concomitant]
  35. DIPHENHYDRAMINE (DIPHENHYDRAMINE) [Concomitant]
  36. PREDNISONE (PREDNISONE) [Concomitant]
  37. FAMOTIDINE (FAMOTIDINE) [Concomitant]
  38. ACETYLCYSTEINE (ACETYLCYSTEINE) [Concomitant]
  39. INTAL (CROMOGLICATE SODIUM) [Concomitant]
  40. NYSTATIN (NYSTATIN) [Concomitant]
  41. FUROSEMIDE (FUROSEMIDE) [Concomitant]
  42. HYDROQUINONE (HYDROQUINONE) [Concomitant]
  43. DOXYCYCLINE (DOXYCYCLINE) [Concomitant]
  44. CEPHALEXIN?/00145501/ (CEFALEXIN) [Concomitant]
  45. CIPROFLOXACIN (CIPROFLOXACIN) [Concomitant]
  46. ?POTASSIUM (POTASSIUM) [Concomitant]
  47. ?LEVAQUIN (LEVOFLOXACIN) [Concomitant]
  48. FLUOCINONIDE (FLUOCINONIDE) [Concomitant]
  49. NEOMYCIN SULF/POLYMYXIN B SULF/DEXAMETHASONE (DEXAMETHASONE, NEOMYCIN SULFATE, POLYMYXIN B SULFATE) [Concomitant]
  50. SYSTANE (MACROGOL, PROPYLENE GLYCOL) [Concomitant]
  51. FERROUS SULFATE (FERROUS SULFATE) [Concomitant]

REACTIONS (7)
  - Hip fracture [None]
  - Comminuted fracture [None]
  - Fall [None]
  - Postoperative heterotopic calcification [None]
  - Arthralgia [None]
  - Femur fracture [None]
  - Road traffic accident [None]
